FAERS Safety Report 13820052 (Version 1)
Quarter: 2017Q3

REPORT INFORMATION
  Report Type: Spontaneous
  Country: US (occurrence: US)
  Receive Date: 20170801
  Receipt Date: 20170801
  Transmission Date: 20171127
  Serious: No
  Sender: FDA-Public Use
  Company Number: US-GLENMARK PHARMACEUTICALS-2016GMK024524

PATIENT

DRUGS (2)
  1. GENTAMICIN. [Concomitant]
     Active Substance: GENTAMICIN
     Indication: IMPETIGO
     Dosage: UNK
     Route: 065
  2. MUPIROCIN. [Suspect]
     Active Substance: MUPIROCIN
     Indication: IMPETIGO
     Dosage: UNK
     Route: 061
     Dates: start: 20161001

REACTIONS (8)
  - Application site inflammation [Recovering/Resolving]
  - Drug administered at inappropriate site [Unknown]
  - Wrong drug administered [Unknown]
  - Amblyopia [Recovering/Resolving]
  - Eye swelling [Recovering/Resolving]
  - Wrong technique in product usage process [Unknown]
  - Ocular hyperaemia [Recovering/Resolving]
  - Condition aggravated [Unknown]
